FAERS Safety Report 9267371 (Version 7)
Quarter: 2017Q1

REPORT INFORMATION
  Report Type: Spontaneous
  Country: US (occurrence: US)
  Receive Date: 20130502
  Receipt Date: 20170220
  Transmission Date: 20170429
  Serious: Yes (Other)
  Sender: FDA-Public Use
  Company Number: US-009507513-1304USA017119

PATIENT
  Sex: Male
  Weight: 78.91 kg

DRUGS (4)
  1. PROPECIA [Suspect]
     Active Substance: FINASTERIDE
     Indication: ALOPECIA
     Dosage: 1 MG, UNK
     Route: 048
     Dates: start: 19980224, end: 201011
  2. FINASTERIDE. [Suspect]
     Active Substance: FINASTERIDE
     Indication: ALOPECIA
     Dosage: 1 MG, UNK
     Route: 048
  3. PROPECIA [Suspect]
     Active Substance: FINASTERIDE
     Dosage: 0.5 MG, QD
     Route: 048
  4. CLEOCIN [Concomitant]
     Active Substance: CLINDAMYCIN PHOSPHATE
     Indication: ACNE
     Dosage: UNK, BID TO NOSE
     Route: 061
     Dates: start: 19970326

REACTIONS (27)
  - Schizophrenia [Unknown]
  - Panic attack [Unknown]
  - Bladder disorder [Unknown]
  - Rash [Unknown]
  - Organic erectile dysfunction [Unknown]
  - Rheumatoid arthritis [Unknown]
  - Wrong technique in product usage process [Unknown]
  - Cough [Unknown]
  - Bacterial infection [Unknown]
  - Loss of libido [Unknown]
  - Spinal column stenosis [Unknown]
  - Sexual dysfunction [Not Recovered/Not Resolved]
  - Skin disorder [Unknown]
  - Skin neoplasm excision [Unknown]
  - Haemangioma removal [Unknown]
  - Sexual dysfunction [Unknown]
  - Fatigue [Unknown]
  - Insomnia [Unknown]
  - Back pain [Unknown]
  - Headache [Unknown]
  - Arthralgia [Unknown]
  - Pain in extremity [Unknown]
  - Libido decreased [Unknown]
  - Epilepsy [Unknown]
  - Erectile dysfunction [Unknown]
  - Gastritis [Recovered/Resolved]
  - Adverse event [Unknown]

NARRATIVE: CASE EVENT DATE: 19981218
